FAERS Safety Report 24422467 (Version 3)
Quarter: 2025Q1

REPORT INFORMATION
  Report Type: Report from Study
  Country: AU (occurrence: AU)
  Receive Date: 20241010
  Receipt Date: 20250102
  Transmission Date: 20250409
  Serious: Yes (Other)
  Sender: REGENERON
  Company Number: AU-BAYER-2024A099332

PATIENT
  Sex: Female

DRUGS (1)
  1. EYLEA [Suspect]
     Active Substance: AFLIBERCEPT
     Indication: Neovascular age-related macular degeneration
     Route: 031

REACTIONS (5)
  - Cataract operation [Recovered/Resolved]
  - Eye disorder [Not Recovered/Not Resolved]
  - Visual impairment [Recovering/Resolving]
  - Procedural pain [Recovered/Resolved]
  - Oxygen saturation decreased [Recovered/Resolved]
